FAERS Safety Report 17889572 (Version 1)
Quarter: 2020Q2

REPORT INFORMATION
  Report Type: Spontaneous
  Country: DE (occurrence: DE)
  Receive Date: 20200612
  Receipt Date: 20200612
  Transmission Date: 20200714
  Serious: Yes (Hospitalization)
  Sender: FDA-Public Use
  Company Number: DE-TEVA-2020-DE-1247688

PATIENT
  Age: 93 Year
  Sex: Male

DRUGS (5)
  1. PHENPROCOUMON [Suspect]
     Active Substance: PHENPROCOUMON
     Dosage: 3 MG, BY VALUE
  2. CARVEDILOL. [Suspect]
     Active Substance: CARVEDILOL
     Dosage: 1 DOSAGE FORMS DAILY; 12.5 MG, 0.5-0-0.5-0
  3. GRANU FINK PROSTA FORTE 500MG [Concomitant]
     Dosage: 2 DOSAGE FORMS DAILY; NK MG, 1-0-1-0
  4. RAMIPRIL. [Concomitant]
     Active Substance: RAMIPRIL
     Dosage: .5 DOSAGE FORMS DAILY; 10 MG, 0-0.5-0-0
  5. TAMSULOSIN [Concomitant]
     Active Substance: TAMSULOSIN
     Dosage: .4 MILLIGRAM DAILY; 0.4 MG, 0-0-1-0

REACTIONS (5)
  - General physical health deterioration [Unknown]
  - Atrial fibrillation [Unknown]
  - Dyspnoea [Unknown]
  - Tachycardia [Unknown]
  - Nocturia [Unknown]
